FAERS Safety Report 25372747 (Version 1)
Quarter: 2025Q2

REPORT INFORMATION
  Report Type: Spontaneous
  Country: GB (occurrence: GB)
  Receive Date: 20250529
  Receipt Date: 20250529
  Transmission Date: 20250716
  Serious: Yes (Life-Threatening, Hospitalization)
  Sender: MYLAN
  Company Number: GB-MYLANLABS-2025M1043684

PATIENT

DRUGS (1)
  1. COLCHICINE [Suspect]
     Active Substance: COLCHICINE
     Indication: Pericardial effusion
     Dosage: 1 MILLIGRAM, BID (RECEIVED FOUR DOSES OF COLCHICINE AT 1MG TWICE DAILY)

REACTIONS (9)
  - Toxicity to various agents [Recovering/Resolving]
  - Cardiovascular disorder [Recovering/Resolving]
  - Metabolic acidosis [Recovering/Resolving]
  - Hyperpyrexia [Recovering/Resolving]
  - Renal impairment [Recovering/Resolving]
  - Hepatic function abnormal [Recovering/Resolving]
  - Coagulopathy [Recovering/Resolving]
  - Thrombocytopenia [Recovering/Resolving]
  - Off label use [Unknown]
